FAERS Safety Report 5008984-8 (Version None)
Quarter: 2006Q2

REPORT INFORMATION
  Report Type: 
  Country: None (occurrence: None)
  Receive Date: 20060519
  Receipt Date: 20060504
  Transmission Date: 20061013
  Serious: Yes (Death)
  Sender: FDA-Public Use
  Company Number: 2006S1003964

PATIENT
  Age: 77 Year
  Sex: Male

DRUGS (1)
  1. CLOZAPINE [Suspect]
     Dosage: 25 MG; QD; ORAL
     Route: 048
     Dates: start: 20040301, end: 20060101

REACTIONS (2)
  - CONDITION AGGRAVATED [None]
  - PARKINSON'S DISEASE [None]
